FAERS Safety Report 23987250 (Version 2)
Quarter: 2024Q3

REPORT INFORMATION
  Report Type: Report from Study
  Country: US (occurrence: US)
  Receive Date: 20240618
  Receipt Date: 20240731
  Transmission Date: 20241016
  Serious: Yes (Other)
  Sender: ALEXION PHARMACEUTICALS
  Company Number: US-AstraZeneca-CH-00645041A

PATIENT
  Sex: Female

DRUGS (1)
  1. SOLIRIS [Suspect]
     Active Substance: ECULIZUMAB
     Indication: Paroxysmal nocturnal haemoglobinuria
     Dosage: UNK UNK, QW
     Route: 065

REACTIONS (4)
  - Myelodysplastic syndrome [Unknown]
  - Anaemia [Unknown]
  - Therapeutic product ineffective [Recovering/Resolving]
  - Off label use [Unknown]
